FAERS Safety Report 21485690 (Version 1)
Quarter: 2022Q4

REPORT INFORMATION
  Report Type: Other
  Country: US (occurrence: None)
  Receive Date: 20221020
  Receipt Date: 20221020
  Transmission Date: 20230113
  Serious: Yes (Life-Threatening, Hospitalization)
  Sender: FDA-Public Use
  Company Number: US-Merck Healthcare KGaA-9358033

PATIENT
  Age: 56 Year
  Sex: Female

DRUGS (1)
  1. METFORMIN HYDROCHLORIDE [Suspect]
     Active Substance: METFORMIN HYDROCHLORIDE
     Indication: Type 2 diabetes mellitus

REACTIONS (7)
  - Pseudostroke [Unknown]
  - Encephalopathy [Unknown]
  - Acute respiratory failure [Recovering/Resolving]
  - Lactic acidosis [Recovering/Resolving]
  - Urinary tract infection bacterial [Unknown]
  - Klebsiella infection [Unknown]
  - Acute kidney injury [Recovering/Resolving]
